FAERS Safety Report 17955541 (Version 1)
Quarter: 2020Q2

REPORT INFORMATION
  Report Type: Spontaneous
  Country: US (occurrence: US)
  Receive Date: 20200626
  Receipt Date: 20200626
  Transmission Date: 20200714
  Serious: No
  Sender: FDA-Public Use
  Company Number: None

PATIENT
  Sex: Female

DRUGS (1)
  1. FORTEO [Suspect]
     Active Substance: TERIPARATIDE
     Indication: GRANULOMATOSIS WITH POLYANGIITIS
     Dosage: ?          OTHER STRENGTH:250MCG/ML;?
     Route: 058
     Dates: start: 202003

REACTIONS (2)
  - Peripheral swelling [None]
  - Furuncle [None]
